FAERS Safety Report 12413402 (Version 3)
Quarter: 2016Q2

REPORT INFORMATION
  Report Type: Other
  Country: DE (occurrence: DE)
  Receive Date: 20160527
  Receipt Date: 20160617
  Transmission Date: 20160815
  Serious: Yes (Hospitalization)
  Sender: FDA-Public Use
  Company Number: DE-MYLANLABS-2016M1021632

PATIENT

DRUGS (2)
  1. MONTELUKAST [Suspect]
     Active Substance: MONTELUKAST SODIUM
     Indication: ASTHMA
     Dosage: UNK
  2. OMALIZUMAB [Suspect]
     Active Substance: OMALIZUMAB
     Indication: ASTHMA
     Dosage: UNK

REACTIONS (6)
  - Pulmonary function test decreased [Recovering/Resolving]
  - Hypereosinophilic syndrome [Recovering/Resolving]
  - Endocarditis fibroplastica [Recovering/Resolving]
  - Arrhythmia supraventricular [Recovering/Resolving]
  - Myocarditis [Recovering/Resolving]
  - Allergic granulomatous angiitis [Recovering/Resolving]

NARRATIVE: CASE EVENT DATE: 20160418
